FAERS Safety Report 4977282-0 (Version None)
Quarter: 2006Q2

REPORT INFORMATION
  Report Type: 
  Country: None (occurrence: None)
  Receive Date: 20060419
  Receipt Date: 20060104
  Transmission Date: 20061013
  Serious: Yes (Hospitalization, Disabling, Other)
  Sender: FDA-Public Use
  Company Number: US-MERCK-0601USA00524

PATIENT
  Age: 58 Year
  Sex: Male
  Weight: 75 kg

DRUGS (8)
  1. VIOXX [Suspect]
     Indication: ARTHRITIS
     Route: 048
     Dates: start: 20000301, end: 20000701
  2. VIOXX [Suspect]
     Route: 048
     Dates: start: 20010325, end: 20011001
  3. VIOXX [Suspect]
     Route: 048
     Dates: start: 20011101, end: 20020201
  4. UBIQUINONES (UNSPECIFIED) [Concomitant]
     Route: 065
  5. VITAMINS (UNSPECIFIED) [Concomitant]
     Route: 065
  6. NORVASC [Concomitant]
     Indication: ANGINA PECTORIS
     Route: 065
     Dates: start: 19990101, end: 20030101
  7. NITROGLYCERIN [Concomitant]
     Indication: ANGINA PECTORIS
     Route: 065
     Dates: start: 19990501, end: 20000101
  8. NITROGLYCERIN [Concomitant]
     Indication: CARDIAC DISORDER
     Route: 065
     Dates: start: 19990501, end: 20000101

REACTIONS (4)
  - ANXIETY [None]
  - HEART INJURY [None]
  - MYOCARDIAL INFARCTION [None]
  - SPINAL DISORDER [None]
